FAERS Safety Report 16825560 (Version 2)
Quarter: 2024Q1

REPORT INFORMATION
  Report Type: Spontaneous
  Country: US (occurrence: US)
  Receive Date: 20190919
  Receipt Date: 20240208
  Transmission Date: 20240410
  Serious: Yes (Hospitalization, Other)
  Sender: FDA-Public Use
  Company Number: US-AUROBINDO-AUR-APL-2019-059044

PATIENT
  Age: 61 Year
  Sex: Male

DRUGS (4)
  1. AMIODARONE HYDROCHLORIDE [Interacting]
     Active Substance: AMIODARONE HYDROCHLORIDE
     Indication: Product used for unknown indication
     Dosage: UNK
     Route: 065
  2. WARFARIN SODIUM [Interacting]
     Active Substance: WARFARIN SODIUM
     Indication: Product used for unknown indication
     Dosage: UNK
     Route: 065
  3. DILTIAZEM [Concomitant]
     Active Substance: DILTIAZEM
     Indication: Product used for unknown indication
     Dosage: UNK
     Route: 065
  4. METOPROLOL [Concomitant]
     Active Substance: METOPROLOL
     Indication: Product used for unknown indication
     Dosage: UNK
     Route: 065

REACTIONS (9)
  - End stage renal disease [Unknown]
  - Hepatotoxicity [Recovering/Resolving]
  - Anticoagulation drug level above therapeutic [Unknown]
  - Renal tubular necrosis [Unknown]
  - Drug-induced liver injury [Recovering/Resolving]
  - Multiple organ dysfunction syndrome [Unknown]
  - Haemorrhage [Unknown]
  - Drug interaction [Unknown]
  - Labelled drug-drug interaction medication error [Recovering/Resolving]
